FAERS Safety Report 23748389 (Version 2)
Quarter: 2024Q3

REPORT INFORMATION
  Report Type: Spontaneous
  Country: US (occurrence: US)
  Receive Date: 20240416
  Receipt Date: 20240924
  Transmission Date: 20241016
  Serious: No
  Sender: SANOFI AVENTIS
  Company Number: US-SA-SAC20240410000969

PATIENT
  Age: 58 Year
  Sex: Female

DRUGS (1)
  1. DUPIXENT [Suspect]
     Active Substance: DUPILUMAB
     Indication: Nasal polyps
     Dosage: 300 MG, QOW
     Route: 058
     Dates: start: 20231113

REACTIONS (5)
  - Anosmia [Recovering/Resolving]
  - Nasal congestion [Recovering/Resolving]
  - Ageusia [Recovering/Resolving]
  - Rhinorrhoea [Recovering/Resolving]
  - Nasal obstruction [Recovering/Resolving]

NARRATIVE: CASE EVENT DATE: 20240401
